FAERS Safety Report 5128441-8 (Version None)
Quarter: 2006Q4

REPORT INFORMATION
  Report Type: 
  Country: None (occurrence: None)
  Receive Date: 20061004
  Receipt Date: 20060919
  Transmission Date: 20070319
  Serious: No
  Sender: FDA-Public Use
  Company Number: 2250051-2006-00417

PATIENT
  Sex: Female

DRUGS (2)
  1. RHOGAM [Suspect]
     Indication: ABORTION SPONTANEOUS
     Dosage: 300 UG 1X  IM
     Route: 030
     Dates: start: 19730101
  2. RHOGAM [Suspect]
     Dosage: 300 UG 3X  IM
     Route: 030
     Dates: start: 19800101

REACTIONS (2)
  - HTLV TEST POSITIVE [None]
  - MENINGITIS CRYPTOCOCCAL [None]
